FAERS Safety Report 4300883-X (Version None)
Quarter: 2004Q1

REPORT INFORMATION
  Report Type: 
  Country: None (occurrence: None)
  Receive Date: 20040219
  Receipt Date: 20040203
  Transmission Date: 20041129
  Serious: Yes (Hospitalization)
  Sender: FDA-Public Use
  Company Number: DSA_23949_2004

PATIENT
  Age: 44 Year
  Sex: Female

DRUGS (2)
  1. LORAZEPAM [Suspect]
     Dosage: 10 MG ONCE PO
     Route: 048
     Dates: start: 20040131, end: 20040131
  2. QUILONUM - SLOW RELEASE [Suspect]
     Dosage: 9000 MG ONCE  PO
     Route: 048
     Dates: start: 20040131, end: 20040131

REACTIONS (2)
  - INTENTIONAL OVERDOSE [None]
  - VOMITING [None]
